FAERS Safety Report 21718421 (Version 2)
Quarter: 2023Q1

REPORT INFORMATION
  Report Type: Spontaneous
  Country: None (occurrence: CA)
  Receive Date: 20221212
  Receipt Date: 20230118
  Transmission Date: 20230417
  Serious: Yes (Other)
  Sender: FDA-Public Use
  Company Number: CA-B.Braun Medical Inc.-2135800

PATIENT
  Sex: Female

DRUGS (7)
  1. DEXTROSE [Suspect]
     Active Substance: DEXTROSE
     Indication: Product used for unknown indication
     Route: 065
  2. AMPHOTERICIN B [Suspect]
     Active Substance: AMPHOTERICIN B
     Route: 065
  3. AMPICILLIN [Suspect]
     Active Substance: AMPICILLIN
     Route: 042
  4. ATOSIBAN [Suspect]
     Active Substance: ATOSIBAN
     Route: 065
  5. AZITHROMYCIN [Suspect]
     Active Substance: AZITHROMYCIN
     Route: 048
  6. BETAMETHASONE [Suspect]
     Active Substance: BETAMETHASONE
     Route: 030
  7. MAGNESIUM SULFATE [Suspect]
     Active Substance: MAGNESIUM SULFATE
     Route: 065

REACTIONS (7)
  - Delivery [Unknown]
  - Maternal exposure during pregnancy [Unknown]
  - Normal labour [Unknown]
  - Premature delivery [Unknown]
  - Product use in unapproved indication [Unknown]
  - Stillbirth [None]
  - Drug ineffective [None]
